FAERS Safety Report 8805744 (Version 1)
Quarter: 2012Q4

REPORT INFORMATION
  Report Type: Report from Study
  Country: DE (occurrence: DE)
  Receive Date: 20120924
  Receipt Date: 20120924
  Transmission Date: 20130627
  Serious: Yes (Hospitalization)
  Sender: FDA-Public Use
  Company Number: DE-ABBOTT-12P-062-0980704-00

PATIENT
  Age: 33 Year
  Sex: Female
  Weight: 48 kg

DRUGS (5)
  1. KALETRA [Suspect]
     Indication: HIV INFECTION
     Dates: start: 20120404
  2. TRUVADA [Suspect]
     Indication: HIV INFECTION
     Dates: start: 20120404, end: 20120407
  3. OMEPRAZOLE [Suspect]
     Indication: PRODUCT USED FOR UNKNOWN INDICATION
     Dates: start: 20110105
  4. LOPERAMIDE [Concomitant]
     Indication: PRODUCT USED FOR UNKNOWN INDICATION
     Dosage: 2-6 Units
     Dates: start: 20120404, end: 20120407
  5. METOCLOPRAMIDE [Concomitant]
     Indication: PRODUCT USED FOR UNKNOWN INDICATION
     Dates: start: 20120404, end: 20120407

REACTIONS (1)
  - Gastrointestinal disorder [Recovered/Resolved]
